FAERS Safety Report 16229641 (Version 1)
Quarter: 2019Q2

REPORT INFORMATION
  Report Type: Spontaneous
  Country: US (occurrence: US)
  Receive Date: 20190423
  Receipt Date: 20190423
  Transmission Date: 20190711
  Serious: Yes (Other)
  Sender: FDA-Public Use
  Company Number: US-BRACCO-2019US00077

PATIENT
  Age: 52 Year
  Sex: Male

DRUGS (2)
  1. VOLUMEN [Suspect]
     Active Substance: BARIUM SULFATE
     Indication: NUCLEAR MAGNETIC RESONANCE IMAGING
     Dosage: 900 ML,(2 BOTTLES)
     Route: 048
     Dates: start: 20181227, end: 20181227
  2. MULTIHANCE [Suspect]
     Active Substance: GADOBENATE DIMEGLUMINE
     Indication: NUCLEAR MAGNETIC RESONANCE IMAGING
     Dosage: 19 ML, SINGLE
     Route: 042
     Dates: start: 20181227, end: 20181227

REACTIONS (2)
  - Off label use [Recovered/Resolved]
  - Anaphylactic reaction [Recovered/Resolved]

NARRATIVE: CASE EVENT DATE: 20181227
